FAERS Safety Report 5640193-1 (Version None)
Quarter: 2008Q1

REPORT INFORMATION
  Report Type: 
  Country: None (occurrence: None)
  Receive Date: 20080227
  Receipt Date: 20080129
  Transmission Date: 20080703
  Serious: No
  Sender: FDA-Public Use
  Company Number: US-BAXTER-2008BH001080

PATIENT
  Age: 41 Year
  Sex: Male
  Weight: 87 kg

DRUGS (4)
  1. HEPARIN SODIUM [Suspect]
     Indication: THROMBOSIS PROPHYLAXIS
     Route: 040
     Dates: start: 20080115, end: 20080115
  2. HEPARIN SODIUM [Suspect]
     Route: 040
     Dates: start: 20080115, end: 20080115
  3. HEPARIN SODIUM [Suspect]
     Dosage: DOSE UNIT:
     Route: 041
     Dates: start: 20080115, end: 20080115
  4. HEPARIN SODIUM [Suspect]
     Dosage: DOSE UNIT:
     Route: 041
     Dates: start: 20080115, end: 20080115

REACTIONS (5)
  - CHEST DISCOMFORT [None]
  - HYPOAESTHESIA [None]
  - NAUSEA [None]
  - PARAESTHESIA [None]
  - SWELLING FACE [None]
